FAERS Safety Report 14075969 (Version 1)
Quarter: 2017Q4

REPORT INFORMATION
  Report Type: Other
  Country: US (occurrence: US)
  Receive Date: 20171010
  Receipt Date: 20171010
  Transmission Date: 20180321
  Serious: Yes (Life-Threatening)
  Sender: FDA-Public Use
  Company Number: US-B. BRAUN MEDICAL INC.-2029540

PATIENT
  Age: 72 Year
  Sex: Female

DRUGS (3)
  1. NORMAL SALINE 0.9% [Concomitant]
     Route: 042
  2. SALBUTAMOL [Suspect]
     Active Substance: ALBUTEROL
     Route: 055
  3. DEXTROSE INJECTIONS USP 0264-7510-00 0264-7510-20 [Suspect]
     Active Substance: DEXTROSE
     Indication: ASTHENIA
     Route: 042

REACTIONS (3)
  - Hypokalaemia [Recovered/Resolved]
  - Metabolic alkalosis [Recovered/Resolved]
  - Torsade de pointes [Recovered/Resolved]
